FAERS Safety Report 6873710-4 (Version None)
Quarter: 2010Q3

REPORT INFORMATION
  Report Type: 
  Country: None (occurrence: None)
  Receive Date: 20100723
  Receipt Date: 20090427
  Transmission Date: 20110219
  Serious: No
  Sender: FDA-Public Use
  Company Number: US-PFIZER INC-2009166186

PATIENT
  Sex: Female
  Weight: 56.699 kg

DRUGS (1)
  1. CHANTIX [Suspect]
     Indication: SMOKING CESSATION THERAPY
     Dosage: 1 MG, 2X/DAY
     Route: 048
     Dates: start: 20090101, end: 20090203

REACTIONS (5)
  - DEPRESSION [None]
  - HEADACHE [None]
  - INFLUENZA LIKE ILLNESS [None]
  - NAUSEA [None]
  - SOMNOLENCE [None]
